FAERS Safety Report 8492571-3 (Version None)
Quarter: 2012Q3

REPORT INFORMATION
  Report Type: 
  Country: None (occurrence: None)
  Receive Date: 20120706
  Receipt Date: 20120628
  Transmission Date: 20120928
  Serious: Yes (Other)
  Sender: FDA-Public Use
  Company Number: ES-B.I. PHARMACEUTICALS,INC./RIDGEFIELD-2012-BP-15010YA

PATIENT
  Age: 50 Year
  Sex: Female

DRUGS (6)
  1. TAMSULOSIN HCL [Suspect]
     Indication: DYSURIA
     Dosage: 0.4 MG
     Route: 048
     Dates: start: 20120601
  2. LEVOTHROID [Concomitant]
     Indication: THYROID DISORDER
  3. SIMVASTATIN [Concomitant]
     Indication: HYPERCHOLESTEROLAEMIA
  4. TRIPTIZOL (AMITRPTYLINE HYDROCHLORIDE) [Concomitant]
     Indication: DEPRESSION
  5. ENALAPRIL MALEATE [Concomitant]
     Indication: HYPERTENSION
  6. TRAMADOL HYDROCHLORIDE [Concomitant]

REACTIONS (2)
  - INCONTINENCE [None]
  - OFF LABEL USE [None]
